FAERS Safety Report 5014226-X (Version None)
Quarter: 2006Q2

REPORT INFORMATION
  Report Type: 
  Country: None (occurrence: None)
  Receive Date: 20060414
  Receipt Date: 20060216
  Transmission Date: 20061013
  Serious: No
  Sender: FDA-Public Use
  Company Number: 2006SP000822

PATIENT
  Age: 68 Year
  Sex: Female
  Weight: 74.8435 kg

DRUGS (8)
  1. LUNESTA [Suspect]
     Indication: SLEEP APNOEA SYNDROME
     Dosage: 3 MG;HS;ORAL
     Route: 048
     Dates: start: 20060214
  2. DIGOXIN [Concomitant]
  3. PLAVIX [Concomitant]
  4. ZETIA [Concomitant]
  5. CENESTIN [Concomitant]
  6. AMITRIPTYLINE HCL [Concomitant]
  7. PREVACID [Concomitant]
  8. MOBIC [Concomitant]

REACTIONS (2)
  - DYSGEUSIA [None]
  - INSOMNIA [None]
